FAERS Safety Report 17693641 (Version 1)
Quarter: 2020Q2

REPORT INFORMATION
  Report Type: Report from Study
  Country: US (occurrence: US)
  Receive Date: 20200422
  Receipt Date: 20200422
  Transmission Date: 20200714
  Serious: Yes (Hospitalization)
  Sender: FDA-Public Use
  Company Number: US-REGENERON PHARMACEUTICALS, INC.-2020-28351

PATIENT

DRUGS (5)
  1. CEMIPLIMAB [Suspect]
     Active Substance: CEMIPLIMAB
     Indication: GLIOBLASTOMA
     Dosage: 350 MG (350 MG,1 IN 1 D)
     Route: 042
     Dates: start: 20200219, end: 20200219
  2. VELEDIMEX [Suspect]
     Active Substance: VELEDIMEX
     Indication: GLIOBLASTOMA
     Dosage: 20 MG (20 MG,1 IN 1 D)
     Route: 048
     Dates: start: 20200224
  3. CEMIPLIMAB [Suspect]
     Active Substance: CEMIPLIMAB
     Dosage: 350 MG (350 MG,1 IN 1 D)
     Route: 042
     Dates: start: 20200310
  4. ENTECAVIR. [Concomitant]
     Active Substance: ENTECAVIR
     Indication: HEPATITIS B
     Dosage: 0.5 MG (0.5 MG,1 IN 1 D)
     Route: 048
     Dates: start: 201910
  5. AD-RTS-HIL-12 [Suspect]
     Active Substance: INVESTIGATIONAL PRODUCT
     Indication: GLIOBLASTOMA
     Dosage: 2.0 X 10 ^11; LEFT FRONTAL (0.1 ML,2.0 X 10^11)
     Route: 036
     Dates: start: 20200224, end: 20200224

REACTIONS (1)
  - Hemiparesis [Recovered/Resolved]

NARRATIVE: CASE EVENT DATE: 20200228
